FAERS Safety Report 14939896 (Version 1)
Quarter: 2018Q2

REPORT INFORMATION
  Report Type: Spontaneous
  Country: RO (occurrence: RO)
  Receive Date: 20180525
  Receipt Date: 20180525
  Transmission Date: 20180711
  Serious: Yes (Other)
  Sender: FDA-Public Use
  Company Number: RO-ASTRAZENECA-2018SE41123

PATIENT
  Sex: Female

DRUGS (1)
  1. BYDUREON [Suspect]
     Active Substance: EXENATIDE
     Route: 065
     Dates: start: 20180201, end: 20180327

REACTIONS (8)
  - Anaphylactic reaction [Unknown]
  - Shock [Unknown]
  - Injection site nodule [Unknown]
  - Angioedema [Unknown]
  - Skin plaque [Unknown]
  - Abdominal pain [Unknown]
  - Erythema [Unknown]
  - Respiratory disorder [Unknown]

NARRATIVE: CASE EVENT DATE: 20180327
